FAERS Safety Report 16263394 (Version 1)
Quarter: 2019Q2

REPORT INFORMATION
  Report Type: Spontaneous
  Country: SE (occurrence: SE)
  Receive Date: 20190502
  Receipt Date: 20190502
  Transmission Date: 20190711
  Serious: Yes (Hospitalization)
  Sender: FDA-Public Use
  Company Number: SE-TEVA-2019-SE-1044757

PATIENT
  Age: 20 Year
  Sex: Female

DRUGS (1)
  1. DIMOR [Suspect]
     Active Substance: LOPERAMIDE
     Route: 048
     Dates: start: 20190206, end: 20190206

REACTIONS (6)
  - Intentional overdose [Unknown]
  - Somnolence [Unknown]
  - Electrocardiogram QT prolonged [Unknown]
  - Intentional self-injury [Unknown]
  - Atrioventricular block first degree [Unknown]
  - Pruritus [Unknown]

NARRATIVE: CASE EVENT DATE: 20190206
